FAERS Safety Report 9617788 (Version 1)
Quarter: 2013Q4

REPORT INFORMATION
  Report Type: Report from Study
  Country: US (occurrence: US)
  Receive Date: 20131011
  Receipt Date: 20131011
  Transmission Date: 20140711
  Serious: Yes (Hospitalization, Other)
  Sender: FDA-Public Use
  Company Number: US-ABBVIE-13P-163-1154317-00

PATIENT
  Age: 38 Year
  Sex: Female
  Weight: 68.1 kg

DRUGS (11)
  1. HUMIRA [Suspect]
     Indication: CROHN^S DISEASE
     Route: 058
     Dates: start: 201209, end: 201209
  2. HUMIRA [Suspect]
     Route: 058
     Dates: start: 201209, end: 201209
  3. HUMIRA [Suspect]
     Route: 058
     Dates: start: 201209
  4. ANTIBIOTICS [Suspect]
     Indication: PNEUMONIA
     Dates: start: 201309, end: 201309
  5. LOPRESSOR [Concomitant]
     Indication: PRODUCT USED FOR UNKNOWN INDICATION
  6. PROZAC [Concomitant]
     Indication: PRODUCT USED FOR UNKNOWN INDICATION
  7. VALIUM [Concomitant]
     Indication: CONVULSION
  8. VALIUM [Concomitant]
     Indication: ANXIETY
  9. ZOFRAN [Concomitant]
     Indication: NAUSEA
  10. PHENERGAN [Concomitant]
     Indication: NAUSEA
  11. FENTANYL [Concomitant]
     Indication: PAIN

REACTIONS (13)
  - Unevaluable event [Recovered/Resolved]
  - Pneumonia [Recovered/Resolved]
  - Gingival abscess [Recovered/Resolved]
  - Furuncle [Recovered/Resolved]
  - Oral infection [Recovered/Resolved]
  - Palpitations [Recovered/Resolved]
  - Cough [Recovering/Resolving]
  - Drug ineffective [Recovered/Resolved]
  - Bronchitis [Recovering/Resolving]
  - Nasal congestion [Recovering/Resolving]
  - Fatigue [Not Recovered/Not Resolved]
  - White blood cell count increased [Recovered/Resolved]
  - Dental caries [Recovered/Resolved]
